FAERS Safety Report 8970216 (Version 1)
Quarter: 2012Q4

REPORT INFORMATION
  Report Type: 
  Country: CN (occurrence: CN)
  Receive Date: 20121217
  Receipt Date: 20121217
  Transmission Date: 20130627
  Serious: Yes (Life-Threatening, Hospitalization)
  Sender: FDA-Public Use
  Company Number: CN-009507513-1212CHN005468

PATIENT
  Age: 58 Year
  Sex: Male

DRUGS (2)
  1. TIENAM [Suspect]
     Indication: AGRANULOCYTOSIS
     Dosage: 1 g, q8h
     Route: 042
     Dates: start: 20121206, end: 20121207
  2. TIENAM [Suspect]
     Indication: PYREXIA

REACTIONS (2)
  - Muscle spasms [Recovered/Resolved]
  - Loss of consciousness [Recovered/Resolved]
